FAERS Safety Report 15555885 (Version 1)
Quarter: 2018Q4

REPORT INFORMATION
  Report Type: Spontaneous
  Country: US (occurrence: US)
  Receive Date: 20181026
  Receipt Date: 20181026
  Transmission Date: 20190205
  Serious: No
  Sender: FDA-Public Use
  Company Number: None

PATIENT
  Age: 59 Year
  Sex: Male
  Weight: 94 kg

DRUGS (2)
  1. ATEZOLIZUMAB. [Suspect]
     Active Substance: ATEZOLIZUMAB
  2. TOCILIZUMAB. [Suspect]
     Active Substance: TOCILIZUMAB

REACTIONS (2)
  - Infusion related reaction [None]
  - Wrong product administered [None]

NARRATIVE: CASE EVENT DATE: 20181023
